FAERS Safety Report 14657632 (Version 1)
Quarter: 2018Q1

REPORT INFORMATION
  Report Type: Report from Study
  Country: ZA (occurrence: ZA)
  Receive Date: 20180320
  Receipt Date: 20180320
  Transmission Date: 20180509
  Serious: Yes (Hospitalization)
  Sender: FDA-Public Use
  Company Number: PHHY2018ZA040236

PATIENT
  Sex: Female

DRUGS (1)
  1. CO-TAREG [Suspect]
     Active Substance: HYDROCHLOROTHIAZIDE\VALSARTAN
     Dosage: 1 DF (HYDROCHLOROTHIAZIDE 12.5MG, VALSARTAN 80MG), UNK
     Route: 048

REACTIONS (2)
  - Musculoskeletal pain [Unknown]
  - Pain in extremity [Unknown]
